FAERS Safety Report 9984463 (Version 1)
Quarter: 2014Q1

REPORT INFORMATION
  Report Type: Report from Study
  Country: US (occurrence: US)
  Receive Date: 20140307
  Receipt Date: 20140307
  Transmission Date: 20141002
  Serious: Yes (Other)
  Sender: FDA-Public Use
  Company Number: US-ABBVIE-13P-163-1182984-00

PATIENT
  Age: 46 Year
  Sex: Female

DRUGS (2)
  1. HUMIRA [Suspect]
     Indication: RHEUMATOID ARTHRITIS
     Dates: start: 201002
  2. CLOBETASOL [Concomitant]
     Indication: PSORIASIS
     Route: 061

REACTIONS (2)
  - Fall [Not Recovered/Not Resolved]
  - Fibula fracture [Not Recovered/Not Resolved]
